FAERS Safety Report 5161053-9 (Version None)
Quarter: 2006Q4

REPORT INFORMATION
  Report Type: 
  Country: None (occurrence: None)
  Receive Date: 20061121
  Receipt Date: 20061107
  Transmission Date: 20070319
  Serious: Yes (Hospitalization, Other)
  Sender: FDA-Public Use
  Company Number: 2006141012

PATIENT
  Sex: Male

DRUGS (1)
  1. LYRICA [Suspect]
     Dosage: 600 MG 1 D

REACTIONS (5)
  - BALANCE DISORDER [None]
  - CEREBELLAR SYNDROME [None]
  - HEADACHE [None]
  - SOMNOLENCE [None]
  - VERTIGO [None]
